FAERS Safety Report 9557437 (Version 1)
Quarter: 2013Q3

REPORT INFORMATION
  Report Type: Spontaneous
  Country: US (occurrence: None)
  Receive Date: 20130724
  Receipt Date: 20130724
  Transmission Date: 20140515
  Serious: Yes (Other)
  Sender: FDA-Public Use
  Company Number: PHEH2013US006472

PATIENT
  Age: 58 Year
  Sex: Female

DRUGS (10)
  1. GILENYA (FINGOLIMOD) CAPSULE, 0.5MG [Suspect]
     Indication: MULTIPLE SCLEROSIS
     Route: 048
  2. AMPYRA (FAMPRIDINE) TABLET, 10MG [Concomitant]
  3. CYMBALTA (DULOXETINE HYDROCHLORIDE) [Concomitant]
  4. DETROL (TOLTERODINE L-TARTRATE) [Concomitant]
  5. NEURONTIN (GABAPENTIN) [Concomitant]
  6. NAPROXEN [Concomitant]
  7. NAMENDA (MEMANTINE HYDROCHLORIDE) [Concomitant]
  8. VIT D (ERGOCALCIFEROL) [Concomitant]
  9. FLEXERIL (CYCLOBENZAPRINE HYDROCHLORIDE) [Concomitant]
  10. TOPIRAMATE [Concomitant]

REACTIONS (2)
  - Fatigue [None]
  - Gait disturbance [None]
